FAERS Safety Report 5630294-6 (Version None)
Quarter: 2008Q1

REPORT INFORMATION
  Report Type: 
  Country: None (occurrence: None)
  Receive Date: 20080215
  Receipt Date: 20080131
  Transmission Date: 20080703
  Serious: Yes (Other)
  Sender: FDA-Public Use
  Company Number: 023369

PATIENT
  Age: 6 Year
  Sex: Male
  Weight: 28 kg

DRUGS (5)
  1. ADDERALL 5 [Suspect]
     Indication: ATTENTION DEFICIT/HYPERACTIVITY DISORDER
     Dosage: 5 MG, QD, ORAL
     Route: 048
     Dates: start: 20071211
  2. ADDERALL XR(DEXAMFETAMINE SULFATE, DEXAMFETAMINE SACCHARATE, AMFETAMIN [Suspect]
     Indication: ATTENTION DEFICIT/HYPERACTIVITY DISORDER
     Dosage: 10 MG, QD, ORAL; 15 MG, QD, ORAL; 20 MG, QD, ORAL
     Route: 048
     Dates: start: 20071030, end: 20071107
  3. ADDERALL XR(DEXAMFETAMINE SULFATE, DEXAMFETAMINE SACCHARATE, AMFETAMIN [Suspect]
     Indication: ATTENTION DEFICIT/HYPERACTIVITY DISORDER
     Dosage: 10 MG, QD, ORAL; 15 MG, QD, ORAL; 20 MG, QD, ORAL
     Route: 048
     Dates: start: 20071108, end: 20071212
  4. ADDERALL XR(DEXAMFETAMINE SULFATE, DEXAMFETAMINE SACCHARATE, AMFETAMIN [Suspect]
     Indication: ATTENTION DEFICIT/HYPERACTIVITY DISORDER
     Dosage: 10 MG, QD, ORAL; 15 MG, QD, ORAL; 20 MG, QD, ORAL
     Route: 048
     Dates: start: 20071213
  5. ZYRTEC [Concomitant]

REACTIONS (7)
  - ANTINUCLEAR ANTIBODY POSITIVE [None]
  - ERYTHEMA [None]
  - ERYTHROMELALGIA [None]
  - HAEMATOCRIT INCREASED [None]
  - OEDEMA PERIPHERAL [None]
  - RAYNAUD'S PHENOMENON [None]
  - SOTOS' SYNDROME [None]
